FAERS Safety Report 4516398-X (Version None)
Quarter: 2004Q4

REPORT INFORMATION
  Report Type: 
  Country: None (occurrence: None)
  Receive Date: 20041202
  Receipt Date: 20041106
  Transmission Date: 20050328
  Serious: Yes (Other)
  Sender: FDA-Public Use
  Company Number: 200414236FR

PATIENT
  Sex: Male

DRUGS (5)
  1. KETEK [Suspect]
     Indication: LARYNGITIS
     Route: 048
     Dates: start: 20041101, end: 20041101
  2. PROZAC [Concomitant]
     Indication: TONSILLITIS
  3. LEXOMIL [Concomitant]
  4. PROFENID [Concomitant]
     Indication: MIGRAINE
  5. DEROXAT [Concomitant]

REACTIONS (6)
  - ACCOMMODATION DISORDER [None]
  - ACTIVITIES OF DAILY LIVING IMPAIRED [None]
  - AMAUROSIS FUGAX [None]
  - ASTHENOPIA [None]
  - DIPLOPIA [None]
  - VISION BLURRED [None]
